FAERS Safety Report 4333829-9 (Version None)
Quarter: 2004Q2

REPORT INFORMATION
  Report Type: 
  Country: None (occurrence: None)
  Receive Date: 20040406
  Receipt Date: 20040406
  Transmission Date: 20050107
  Serious: Yes (Life-Threatening)
  Sender: FDA-Public Use
  Company Number: None

PATIENT
  Age: 22 Year
  Sex: Male
  Weight: 74.8435 kg

DRUGS (2)
  1. PAXIL CR [Suspect]
     Indication: DEPRESSION
     Dosage: ONE TABLET ONCE DAILY ORAL
     Route: 048
     Dates: start: 20031015, end: 20031206
  2. PAXIL CR [Suspect]
     Dates: start: 20031202, end: 20030226

REACTIONS (13)
  - ANGER [None]
  - ANHEDONIA [None]
  - APATHY [None]
  - DELUSION [None]
  - DEPRESSION [None]
  - FACIAL PAIN [None]
  - FEAR [None]
  - INSOMNIA [None]
  - LETHARGY [None]
  - PAIN IN JAW [None]
  - PARANOIA [None]
  - RESTLESSNESS [None]
  - TREMOR [None]
